FAERS Safety Report 10435780 (Version 4)
Quarter: 2015Q3

REPORT INFORMATION
  Report Type: Spontaneous
  Country: US (occurrence: US)
  Receive Date: 20140908
  Receipt Date: 20150702
  Transmission Date: 20151125
  Serious: No
  Sender: FDA-Public Use
  Company Number: US-ELI_LILLY_AND_COMPANY-US201407001570

PATIENT
  Age: 68 Year
  Sex: Female

DRUGS (3)
  1. SOMATROPIN [Suspect]
     Active Substance: SOMATROPIN
     Indication: GROWTH HORMONE DEFICIENCY
     Dosage: 0.3 MG, QD
     Dates: start: 20140703
  2. SOMATROPIN [Suspect]
     Active Substance: SOMATROPIN
     Indication: HYPOPITUITARISM
     Dosage: 0.4 MG, QD
     Route: 065
  3. SOMATROPIN [Suspect]
     Active Substance: SOMATROPIN
     Indication: ADRENAL INSUFFICIENCY
     Dosage: 0.03 MG, QD
     Route: 065
     Dates: start: 200801

REACTIONS (4)
  - Arthralgia [Unknown]
  - Foot fracture [Unknown]
  - Drug dose omission [Unknown]
  - Generalised oedema [Unknown]

NARRATIVE: CASE EVENT DATE: 20141107
